FAERS Safety Report 15619534 (Version 1)
Quarter: 2018Q4

REPORT INFORMATION
  Report Type: Spontaneous
  Country: HU (occurrence: HU)
  Receive Date: 20181115
  Receipt Date: 20181115
  Transmission Date: 20190205
  Serious: Yes (Hospitalization)
  Sender: FDA-Public Use
  Company Number: HU-ABBVIE-18K-076-2551896-00

PATIENT
  Age: 68 Year

DRUGS (2)
  1. VENCLYXTO [Suspect]
     Active Substance: VENETOCLAX
     Route: 048
     Dates: start: 2018
  2. VENCLYXTO [Suspect]
     Active Substance: VENETOCLAX
     Indication: CHRONIC LYMPHOCYTIC LEUKAEMIA
     Route: 048
     Dates: start: 20181004, end: 2018

REACTIONS (3)
  - Dizziness [Not Recovered/Not Resolved]
  - Encephalitis [Recovered/Resolved]
  - Ataxia [Not Recovered/Not Resolved]

NARRATIVE: CASE EVENT DATE: 20181011
